FAERS Safety Report 17143649 (Version 3)
Quarter: 2020Q3

REPORT INFORMATION
  Report Type: Spontaneous
  Country: US (occurrence: US)
  Receive Date: 20191212
  Receipt Date: 20200713
  Transmission Date: 20201102
  Serious: Yes (Other)
  Sender: FDA-Public Use
  Company Number: US-PFIZER INC-2019535745

PATIENT
  Age: 56 Year
  Sex: Female

DRUGS (1)
  1. IBRANCE [Suspect]
     Active Substance: PALBOCICLIB
     Dosage: 125 MG, CYCLIC (1 CAPSULE, DAILY FOR 21 DAYS THEN OFF 7)
     Route: 048
     Dates: start: 20191101, end: 20200605

REACTIONS (6)
  - Neuropathy peripheral [Unknown]
  - White blood cell count decreased [Unknown]
  - Nausea [Recovering/Resolving]
  - Diarrhoea [Unknown]
  - Peripheral swelling [Unknown]
  - Fatigue [Recovering/Resolving]

NARRATIVE: CASE EVENT DATE: 2019
